FAERS Safety Report 8900280 (Version 1)
Quarter: 2012Q4

REPORT INFORMATION
  Report Type: 
  Country: US (occurrence: US)
  Receive Date: 20121108
  Receipt Date: 20121108
  Transmission Date: 20130627
  Serious: No
  Sender: FDA-Public Use
  Company Number: US-AMGEN-USASP2012037643

PATIENT
  Sex: Female

DRUGS (3)
  1. ENBREL [Suspect]
     Indication: PSORIATIC ARTHROPATHY
     Dosage: 25 mg, 2 times/wk
     Dates: start: 201108
  2. PREDNISONE [Concomitant]
     Dosage: UNK
  3. MULTIVITAMIN                       /00097801/ [Concomitant]
     Dosage: UNK

REACTIONS (1)
  - Cystitis [Unknown]
